FAERS Safety Report 10250581 (Version 1)
Quarter: 2014Q2

REPORT INFORMATION
  Report Type: Report from Study
  Country: US (occurrence: US)
  Receive Date: 20140620
  Receipt Date: 20140620
  Transmission Date: 20141212
  Serious: Yes (Death)
  Sender: FDA-Public Use
  Company Number: US-BAXTER-2014BAX033813

PATIENT
  Sex: 0

DRUGS (2)
  1. LACTATED RINGER^S INJECTION, USP [Suspect]
     Indication: PANCREATITIS ACUTE
     Dosage: 20 ML/KG FOR THE FIRST HOUR
     Route: 042
  2. LACTATED RINGER^S INJECTION, USP [Suspect]
     Dosage: 3 ML/KG/HOUR
     Route: 042

REACTIONS (1)
  - Death [Fatal]
